FAERS Safety Report 11624573 (Version 2)
Quarter: 2015Q4

REPORT INFORMATION
  Report Type: Report from Study
  Country: JP (occurrence: JP)
  Receive Date: 20151013
  Receipt Date: 20151015
  Transmission Date: 20160304
  Serious: Yes (Other)
  Sender: FDA-Public Use
  Company Number: PHHY2014JP036067

PATIENT
  Age: 43 Year
  Sex: Male

DRUGS (42)
  1. CLOZARIL [Suspect]
     Active Substance: CLOZAPINE
     Dosage: 150 MG, QD
     Route: 048
     Dates: start: 20110920, end: 20110922
  2. ALEVIATIN [Concomitant]
     Active Substance: PHENYTOIN SODIUM
     Indication: EPILEPSY
     Dosage: 300 MG, QD
     Route: 048
     Dates: start: 20111110, end: 20120718
  3. LINTON [Concomitant]
     Active Substance: HALOPERIDOL
     Dosage: 12 MG, QD
     Route: 048
     Dates: start: 20110929, end: 20110930
  4. CLOZARIL [Suspect]
     Active Substance: CLOZAPINE
     Dosage: 175 MG, QD
     Route: 048
     Dates: start: 20110923, end: 20110926
  5. ALEVIATIN [Concomitant]
     Active Substance: PHENYTOIN SODIUM
     Dosage: 200 MG, QD
     Route: 048
     Dates: start: 20121126, end: 20130109
  6. LINTON [Concomitant]
     Active Substance: HALOPERIDOL
     Dosage: 18 MG, QD
     Route: 048
     Dates: start: 20110927, end: 20110928
  7. CLOZARIL [Suspect]
     Active Substance: CLOZAPINE
     Dosage: 600 MG, QD
     Route: 048
     Dates: start: 20111013
  8. LIMAS [Concomitant]
     Active Substance: LITHIUM CARBONATE
     Dosage: 600 MG, QD
     Route: 050
     Dates: start: 20130610
  9. ALEVIATIN [Concomitant]
     Active Substance: PHENYTOIN SODIUM
     Indication: EPILEPSY
     Dosage: 200 MG, QD
     Route: 048
     Dates: start: 20110907, end: 20110911
  10. CLOZARIL [Suspect]
     Active Substance: CLOZAPINE
     Dosage: 25 MG, QD
     Route: 048
     Dates: start: 20110908, end: 20110908
  11. CLOZARIL [Suspect]
     Active Substance: CLOZAPINE
     Dosage: 200 MG, QD
     Route: 048
     Dates: start: 20110927, end: 20110930
  12. ALEVIATIN [Concomitant]
     Active Substance: PHENYTOIN SODIUM
     Dosage: 200 MG, QD
     Route: 048
     Dates: start: 20120719, end: 20120727
  13. ALEVIATIN [Concomitant]
     Active Substance: PHENYTOIN SODIUM
     Dosage: 200 MG, QD
     Route: 048
     Dates: start: 20130411, end: 20130515
  14. LIMAS [Concomitant]
     Active Substance: LITHIUM CARBONATE
     Indication: SCHIZOPHRENIA, DISORGANISED TYPE
     Dosage: 1000 MG, QD
     Route: 048
     Dates: start: 20110908, end: 20120923
  15. LIMAS [Concomitant]
     Active Substance: LITHIUM CARBONATE
     Dosage: 600 MG, QD
     Route: 048
     Dates: start: 20120924, end: 20121009
  16. LIMAS [Concomitant]
     Active Substance: LITHIUM CARBONATE
     Dosage: 400 MG, QD
     Route: 048
     Dates: start: 20121010, end: 20130609
  17. LINTON [Concomitant]
     Active Substance: HALOPERIDOL
     Dosage: 6 MG, QD
     Route: 048
     Dates: start: 20111001, end: 20111004
  18. ALEVIATIN [Concomitant]
     Active Substance: PHENYTOIN SODIUM
     Dosage: 350 MG, QD
     Route: 048
     Dates: start: 20110912, end: 20111109
  19. RISPERDAL [Concomitant]
     Active Substance: RISPERIDONE
     Dosage: 4 MG, QD
     Route: 050
     Dates: start: 20130523, end: 20130529
  20. CLOZARIL [Suspect]
     Active Substance: CLOZAPINE
     Dosage: 125 MG, QD
     Route: 048
     Dates: start: 20110916, end: 20110919
  21. CLOZARIL [Suspect]
     Active Substance: CLOZAPINE
     Dosage: 300 MG, QD
     Route: 048
     Dates: start: 20111001, end: 20111003
  22. ALEVIATIN [Concomitant]
     Active Substance: PHENYTOIN SODIUM
     Dosage: 225 MG, QD
     Route: 048
     Dates: start: 20130121, end: 20130410
  23. HYDANTOL [Concomitant]
     Active Substance: PHENYTOIN SODIUM
     Dosage: 150 MG, QD
     Route: 048
     Dates: start: 20130516
  24. CLOZARIL [Suspect]
     Active Substance: CLOZAPINE
     Dosage: 50 MG, QD
     Route: 048
     Dates: start: 20110909, end: 20110910
  25. CLOZARIL [Suspect]
     Active Substance: CLOZAPINE
     Dosage: 400 MG, QD
     Route: 048
     Dates: start: 20111004, end: 20111008
  26. ALEVIATIN [Concomitant]
     Active Substance: PHENYTOIN SODIUM
     Dosage: 150 MG, QD
     Route: 048
     Dates: start: 20130110, end: 20130120
  27. RISPERDAL [Concomitant]
     Active Substance: RISPERIDONE
     Indication: SCHIZOPHRENIA, DISORGANISED TYPE
     Dosage: 6 MG, QD
     Route: 050
     Dates: start: 20130404, end: 20130522
  28. HYDANTOL [Concomitant]
     Active Substance: PHENYTOIN SODIUM
     Indication: EPILEPSY
     Dosage: 50 MG, QD
     Route: 048
     Dates: start: 20111110, end: 20111123
  29. CLOZARIL [Suspect]
     Active Substance: CLOZAPINE
     Dosage: 75 MG, QD
     Route: 048
     Dates: start: 20110911, end: 20110912
  30. CLOZARIL [Suspect]
     Active Substance: CLOZAPINE
     Dosage: 100 MG, QD
     Route: 048
     Dates: start: 20110913, end: 20110915
  31. RIVOTRIL [Concomitant]
     Active Substance: CLONAZEPAM
     Indication: EPILEPSY
     Dosage: 1 MG, QD
     Route: 048
     Dates: start: 20111208
  32. RISPERDAL [Concomitant]
     Active Substance: RISPERIDONE
     Dosage: 2 MG, QD
     Route: 050
     Dates: start: 20130530, end: 20130605
  33. RISPERDAL CONSTA [Concomitant]
     Active Substance: RISPERIDONE
     Dosage: 4 MG, QD
     Route: 048
     Dates: start: 20130212, end: 20130403
  34. CLOZARIL [Suspect]
     Active Substance: CLOZAPINE
     Indication: SCHIZOPHRENIA, DISORGANISED TYPE
     Dosage: 12.5 MG, QD
     Route: 048
     Dates: start: 20110907, end: 20110907
  35. CLOZARIL [Suspect]
     Active Substance: CLOZAPINE
     Dosage: 500 MG, QD
     Route: 048
     Dates: start: 20111009, end: 20111012
  36. CLOZARIL [Suspect]
     Active Substance: CLOZAPINE
     Dosage: 300 MG, BID
     Route: 048
     Dates: start: 20120308
  37. ALEVIATIN [Concomitant]
     Active Substance: PHENYTOIN SODIUM
     Dosage: 250 MG, QD
     Route: 048
     Dates: start: 20120728, end: 20121104
  38. ALEVIATIN [Concomitant]
     Active Substance: PHENYTOIN SODIUM
     Dosage: 225 MG, QD
     Route: 048
     Dates: start: 20121105, end: 20121125
  39. LINTON [Concomitant]
     Active Substance: HALOPERIDOL
     Indication: SCHIZOPHRENIA, DISORGANISED TYPE
     Dosage: 21 MG, QD
     Route: 048
     Dates: start: 20110907, end: 20110926
  40. RISPERDAL CONSTA [Concomitant]
     Active Substance: RISPERIDONE
     Indication: SCHIZOPHRENIA, DISORGANISED TYPE
     Dosage: 2 MG, QD
     Route: 048
     Dates: start: 20130204, end: 20130211
  41. RISPERDAL CONSTA [Concomitant]
     Active Substance: RISPERIDONE
     Dosage: 1 MG, QD
     Route: 048
     Dates: start: 20130718, end: 20130807
  42. RISPERDAL CONSTA [Concomitant]
     Active Substance: RISPERIDONE
     Dosage: 2 MG, QD
     Route: 048
     Dates: start: 20130808

REACTIONS (12)
  - Catatonia [Unknown]
  - Neutrophil percentage increased [Unknown]
  - Weight decreased [Unknown]
  - Red blood cell count decreased [Unknown]
  - Neutrophil percentage increased [Recovered/Resolved]
  - Blood pressure systolic increased [Unknown]
  - Hypophagia [Unknown]
  - Lymphocyte percentage decreased [Not Recovered/Not Resolved]
  - Neutrophil percentage increased [Recovered/Resolved]
  - Hypersensitivity [Unknown]
  - White blood cell count increased [Recovered/Resolved]
  - White blood cell count increased [Unknown]

NARRATIVE: CASE EVENT DATE: 201205
